FAERS Safety Report 19673825 (Version 1)
Quarter: 2021Q3

REPORT INFORMATION
  Report Type: Spontaneous
  Country: US (occurrence: US)
  Receive Date: 20210806
  Receipt Date: 20210806
  Transmission Date: 20211014
  Serious: No
  Sender: FDA-Public Use
  Company Number: None

PATIENT
  Sex: Male

DRUGS (2)
  1. TREMFYA [Suspect]
     Active Substance: GUSELKUMAB
     Indication: POLYARTHRITIS
     Dosage: OTHER FREQUENCY:WEEK 4, 8 WEEKS ;?
     Route: 058
     Dates: start: 20210223
  2. TREMFYA [Suspect]
     Active Substance: GUSELKUMAB
     Indication: PSORIATIC ARTHROPATHY
     Dosage: OTHER FREQUENCY:WEEK 4, 8 WEEKS ;?
     Route: 058
     Dates: start: 20210223

REACTIONS (1)
  - Treatment failure [None]
